FAERS Safety Report 4384669-6 (Version None)
Quarter: 2004Q2

REPORT INFORMATION
  Report Type: 
  Country: None (occurrence: None)
  Receive Date: 20040621
  Receipt Date: 20040609
  Transmission Date: 20050107
  Serious: Yes (Life-Threatening, Hospitalization)
  Sender: FDA-Public Use
  Company Number: EM2004-0251

PATIENT
  Age: 57 Year
  Sex: Female
  Weight: 53 kg

DRUGS (8)
  1. PROLEUKIN [Suspect]
     Indication: RENAL CELL CARCINOMA STAGE UNSPECIFIED
     Dosage: SEE IMAGE
     Route: 058
     Dates: start: 20040317, end: 20040409
  2. PROLEUKIN [Suspect]
     Indication: RENAL CELL CARCINOMA STAGE UNSPECIFIED
     Dosage: SEE IMAGE
     Route: 058
     Dates: start: 20040317, end: 20040409
  3. INTERFERON ALFA (INTERFERON ALFA) [Suspect]
     Indication: RENAL CELL CARCINOMA STAGE UNSPECIFIED
     Dosage: 6 MU/M2, QW, WKS 1 AND 4, SUBCUTAN.
     Route: 058
     Dates: start: 20040315, end: 20040507
  4. INTERFERON ALFA (INTERFERON ALFA) [Suspect]
     Indication: RENAL CELL CARCINOMA STAGE UNSPECIFIED
     Dosage: 6 MU/M2, QW, WKS 1 AND 4, SUBCUTAN.
     Route: 058
     Dates: start: 20040315, end: 20040507
  5. FLUOROURACIL [Suspect]
     Indication: RENAL CELL CARCINOMA STAGE UNSPECIFIED
     Dosage: 1150 MG,
     Dates: start: 20040412, end: 20040503
  6. FLUOROURACIL [Suspect]
  7. VASOCARDIN (METOPROLOL TARTRATE) [Concomitant]
  8. BROMAZEPAM (BROMAZEPAM) [Concomitant]

REACTIONS (10)
  - ABASIA [None]
  - CEREBROVASCULAR DISORDER [None]
  - DIARRHOEA [None]
  - FEBRILE NEUTROPENIA [None]
  - HAEMOGLOBIN DECREASED [None]
  - HYPOTENSION [None]
  - MALIGNANT NEOPLASM PROGRESSION [None]
  - RENAL CELL CARCINOMA STAGE UNSPECIFIED [None]
  - SEPSIS [None]
  - SUBILEUS [None]
